FAERS Safety Report 6450573-2 (Version None)
Quarter: 2009Q4

REPORT INFORMATION
  Report Type: 
  Country: None (occurrence: None)
  Receive Date: 20091123
  Receipt Date: 20091118
  Transmission Date: 20100525
  Serious: Yes (Life-Threatening)
  Sender: FDA-Public Use
  Company Number: FR-ASTRAZENECA-2009SE27501

PATIENT
  Age: 45 Year
  Sex: Male

DRUGS (6)
  1. NEXIUM [Suspect]
     Route: 048
     Dates: start: 20090819, end: 20090820
  2. TAHOR [Concomitant]
     Route: 048
     Dates: start: 20090817
  3. TENORMIN [Concomitant]
     Route: 048
     Dates: start: 20090817
  4. PLAVIX [Concomitant]
     Route: 048
     Dates: start: 20090817
  5. KARDEGIC [Concomitant]
     Route: 048
     Dates: start: 20090817
  6. XENETIX [Concomitant]
     Route: 042
     Dates: start: 20090819, end: 20090819

REACTIONS (5)
  - ANAPHYLACTIC REACTION [None]
  - ANGIOEDEMA [None]
  - BLOOD PRESSURE DECREASED [None]
  - PRURITUS GENERALISED [None]
  - TACHYCARDIA [None]
